FAERS Safety Report 13411624 (Version 2)
Quarter: 2017Q4

REPORT INFORMATION
  Report Type: Spontaneous
  Country: US (occurrence: US)
  Receive Date: 20170406
  Receipt Date: 20171103
  Transmission Date: 20180320
  Serious: Yes (Other)
  Sender: FDA-Public Use
  Company Number: US-JNJFOC-20170302229

PATIENT
  Age: 11 Year
  Sex: Male

DRUGS (44)
  1. RISPERDAL [Suspect]
     Active Substance: RISPERIDONE
     Indication: ABNORMAL BEHAVIOUR
     Route: 048
     Dates: start: 20120824
  2. RISPERDAL [Suspect]
     Active Substance: RISPERIDONE
     Indication: ANGER
     Dosage: VARYING DOSES OF 1 MG AND 2 MG.
     Route: 048
     Dates: start: 20040403, end: 20050402
  3. RISPERDAL [Suspect]
     Active Substance: RISPERIDONE
     Indication: ATTENTION DEFICIT/HYPERACTIVITY DISORDER
     Route: 048
     Dates: start: 20050429
  4. RISPERDAL [Suspect]
     Active Substance: RISPERIDONE
     Indication: SCHIZOAFFECTIVE DISORDER
     Route: 048
     Dates: start: 20050429
  5. RISPERDAL [Suspect]
     Active Substance: RISPERIDONE
     Indication: ABNORMAL BEHAVIOUR
     Dosage: VARYING DOSES OF 0.5 MG, 1 MG AND 2 MG
     Route: 048
     Dates: start: 20000607, end: 20030815
  6. RISPERDAL [Suspect]
     Active Substance: RISPERIDONE
     Indication: IRRITABILITY
     Route: 048
     Dates: start: 20050429
  7. RISPERDAL [Suspect]
     Active Substance: RISPERIDONE
     Indication: IRRITABILITY
     Route: 048
     Dates: start: 20120824
  8. RISPERDAL [Suspect]
     Active Substance: RISPERIDONE
     Indication: IRRITABILITY
     Dosage: VARYING DOSES OF 0.5 MG, 1 MG, 2 MG AND 3 MG
     Route: 048
     Dates: start: 20101116, end: 20120802
  9. RISPERDAL [Suspect]
     Active Substance: RISPERIDONE
     Indication: IRRITABILITY
     Dosage: VARYING DOSES OF 0.5 MG, 1 MG AND 2 MG
     Route: 048
     Dates: start: 20000607, end: 20030815
  10. RISPERDAL [Suspect]
     Active Substance: RISPERIDONE
     Indication: INTERMITTENT EXPLOSIVE DISORDER
     Route: 048
     Dates: start: 20120824
  11. RISPERDAL [Suspect]
     Active Substance: RISPERIDONE
     Indication: INTERMITTENT EXPLOSIVE DISORDER
     Route: 048
     Dates: start: 20050429
  12. RISPERDAL [Suspect]
     Active Substance: RISPERIDONE
     Indication: SCHIZOAFFECTIVE DISORDER
     Dosage: VARYING DOSES OF 1 MG AND 2 MG.
     Route: 048
     Dates: start: 20040403, end: 20050402
  13. RISPERIDONE. [Suspect]
     Active Substance: RISPERIDONE
     Indication: ATTENTION DEFICIT/HYPERACTIVITY DISORDER
     Route: 048
     Dates: start: 20000607, end: 20120824
  14. RISPERIDONE. [Suspect]
     Active Substance: RISPERIDONE
     Indication: SCHIZOAFFECTIVE DISORDER
     Route: 048
     Dates: start: 20000607, end: 20120824
  15. RISPERDAL [Suspect]
     Active Substance: RISPERIDONE
     Indication: ABNORMAL BEHAVIOUR
     Dosage: 1 MG, HALF TABLET IN THE MORNING AND ONE AND HALF TABLET NIGHT DOSE
     Route: 048
     Dates: start: 20031024, end: 20040312
  16. RISPERDAL [Suspect]
     Active Substance: RISPERIDONE
     Indication: IRRITABILITY
     Dosage: 1 MG, HALF TABLET IN THE MORNING AND ONE AND HALF TABLET NIGHT DOSE
     Route: 048
     Dates: start: 20031024, end: 20040312
  17. RISPERDAL [Suspect]
     Active Substance: RISPERIDONE
     Indication: ANGER
     Dosage: VARYING DOSES OF 0.5 MG, 1 MG AND 2 MG
     Route: 048
     Dates: start: 20000607, end: 20030815
  18. RISPERDAL [Suspect]
     Active Substance: RISPERIDONE
     Indication: ATTENTION DEFICIT/HYPERACTIVITY DISORDER
     Route: 048
     Dates: start: 20120824
  19. RISPERDAL [Suspect]
     Active Substance: RISPERIDONE
     Indication: ATTENTION DEFICIT/HYPERACTIVITY DISORDER
     Dosage: VARYING DOSES OF 0.5 MG, 1 MG, 2 MG AND 3 MG
     Route: 048
     Dates: start: 20101116, end: 20120802
  20. RISPERDAL [Suspect]
     Active Substance: RISPERIDONE
     Indication: ATTENTION DEFICIT/HYPERACTIVITY DISORDER
     Dosage: 1 MG, HALF TABLET IN THE MORNING AND ONE AND HALF TABLET NIGHT DOSE
     Route: 048
     Dates: start: 20031024, end: 20040312
  21. RISPERDAL [Suspect]
     Active Substance: RISPERIDONE
     Indication: ABNORMAL BEHAVIOUR
     Dosage: VARYING DOSES OF 1 MG AND 2 MG.
     Route: 048
     Dates: start: 20040403, end: 20050402
  22. RISPERDAL [Suspect]
     Active Substance: RISPERIDONE
     Indication: INTERMITTENT EXPLOSIVE DISORDER
     Dosage: VARYING DOSES OF 0.5 MG, 1 MG, 2 MG AND 3 MG
     Route: 048
     Dates: start: 20101116, end: 20120802
  23. RISPERDAL [Suspect]
     Active Substance: RISPERIDONE
     Indication: INTERMITTENT EXPLOSIVE DISORDER
     Dosage: VARYING DOSES OF 0.5 MG, 1 MG AND 2 MG
     Route: 048
     Dates: start: 20000607, end: 20030815
  24. RISPERDAL [Suspect]
     Active Substance: RISPERIDONE
     Indication: ATTENTION DEFICIT/HYPERACTIVITY DISORDER
     Dosage: VARYING DOSES OF 1 MG AND 2 MG.
     Route: 048
     Dates: start: 20040403, end: 20050402
  25. DEPAKOTE [Suspect]
     Active Substance: DIVALPROEX SODIUM
     Indication: PRODUCT USED FOR UNKNOWN INDICATION
     Route: 065
  26. RISPERDAL [Suspect]
     Active Substance: RISPERIDONE
     Indication: ANGER
     Route: 048
     Dates: start: 20050429
  27. RISPERDAL [Suspect]
     Active Substance: RISPERIDONE
     Indication: ANGER
     Route: 048
     Dates: start: 20120824
  28. RISPERDAL [Suspect]
     Active Substance: RISPERIDONE
     Indication: INTERMITTENT EXPLOSIVE DISORDER
     Dosage: VARYING DOSES OF 1 MG AND 2 MG.
     Route: 048
     Dates: start: 20040403, end: 20050402
  29. RISPERDAL [Suspect]
     Active Substance: RISPERIDONE
     Indication: SCHIZOAFFECTIVE DISORDER
     Route: 048
     Dates: start: 20120824
  30. RISPERIDONE. [Suspect]
     Active Substance: RISPERIDONE
     Indication: INTERMITTENT EXPLOSIVE DISORDER
     Route: 048
     Dates: start: 20120824
  31. RISPERIDONE. [Suspect]
     Active Substance: RISPERIDONE
     Indication: ATTENTION DEFICIT/HYPERACTIVITY DISORDER
     Route: 048
     Dates: start: 20120824
  32. RISPERIDONE. [Suspect]
     Active Substance: RISPERIDONE
     Indication: SCHIZOAFFECTIVE DISORDER
     Route: 048
     Dates: start: 20120824
  33. RISPERDAL [Suspect]
     Active Substance: RISPERIDONE
     Indication: ABNORMAL BEHAVIOUR
     Dosage: VARYING DOSES OF 0.5 MG, 1 MG, 2 MG AND 3 MG
     Route: 048
     Dates: start: 20101116, end: 20120802
  34. RISPERDAL [Suspect]
     Active Substance: RISPERIDONE
     Indication: IRRITABILITY
     Dosage: VARYING DOSES OF 1 MG AND 2 MG.
     Route: 048
     Dates: start: 20040403, end: 20050402
  35. RISPERDAL [Suspect]
     Active Substance: RISPERIDONE
     Indication: ANGER
     Dosage: 1 MG, HALF TABLET IN THE MORNING AND ONE AND HALF TABLET NIGHT DOSE
     Route: 048
     Dates: start: 20031024, end: 20040312
  36. RISPERDAL [Suspect]
     Active Substance: RISPERIDONE
     Indication: SCHIZOAFFECTIVE DISORDER
     Dosage: VARYING DOSES OF 0.5 MG, 1 MG AND 2 MG
     Route: 048
     Dates: start: 20000607, end: 20030815
  37. RISPERDAL [Suspect]
     Active Substance: RISPERIDONE
     Indication: ABNORMAL BEHAVIOUR
     Route: 048
     Dates: start: 20050429
  38. RISPERDAL [Suspect]
     Active Substance: RISPERIDONE
     Indication: ANGER
     Dosage: VARYING DOSES OF 0.5 MG, 1 MG, 2 MG AND 3 MG
     Route: 048
     Dates: start: 20101116, end: 20120802
  39. RISPERDAL [Suspect]
     Active Substance: RISPERIDONE
     Indication: ATTENTION DEFICIT/HYPERACTIVITY DISORDER
     Dosage: VARYING DOSES OF 0.5 MG, 1 MG AND 2 MG
     Route: 048
     Dates: start: 20000607, end: 20030815
  40. RISPERDAL [Suspect]
     Active Substance: RISPERIDONE
     Indication: SCHIZOAFFECTIVE DISORDER
     Dosage: 1 MG, HALF TABLET IN THE MORNING AND ONE AND HALF TABLET NIGHT DOSE
     Route: 048
     Dates: start: 20031024, end: 20040312
  41. RISPERDAL [Suspect]
     Active Substance: RISPERIDONE
     Indication: SCHIZOAFFECTIVE DISORDER
     Dosage: VARYING DOSES OF 0.5 MG, 1 MG, 2 MG AND 3 MG
     Route: 048
     Dates: start: 20101116, end: 20120802
  42. RISPERIDONE. [Suspect]
     Active Substance: RISPERIDONE
     Indication: INTERMITTENT EXPLOSIVE DISORDER
     Route: 048
     Dates: start: 20000607, end: 20120824
  43. RISPERDAL [Suspect]
     Active Substance: RISPERIDONE
     Indication: INTERMITTENT EXPLOSIVE DISORDER
     Dosage: 1 MG, HALF TABLET IN THE MORNING AND ONE AND HALF TABLET NIGHT DOSE
     Route: 048
     Dates: start: 20031024, end: 20040312
  44. CONCERTA [Suspect]
     Active Substance: METHYLPHENIDATE HYDROCHLORIDE
     Indication: PRODUCT USED FOR UNKNOWN INDICATION
     Route: 048

REACTIONS (5)
  - Emotional disorder [Unknown]
  - Obesity [Unknown]
  - Sedation [Unknown]
  - Gynaecomastia [Unknown]
  - Increased appetite [Unknown]

NARRATIVE: CASE EVENT DATE: 20040514
